FAERS Safety Report 4678702-1 (Version None)
Quarter: 2005Q2

REPORT INFORMATION
  Report Type: 
  Country: None (occurrence: None)
  Receive Date: 20050531
  Receipt Date: 20050315
  Transmission Date: 20051028
  Serious: Yes (Hospitalization)
  Sender: FDA-Public Use
  Company Number: 13569

PATIENT
  Age: 3 Year
  Sex: Female

DRUGS (5)
  1. CLOFARABINE [Suspect]
     Indication: ACUTE LYMPHOCYTIC LEUKAEMIA
     Dosage: 14.04 MG QD IV
     Route: 042
     Dates: start: 20040816, end: 20050218
  2. CLOFARABINE [Suspect]
     Indication: RECURRENT CANCER
     Dosage: 14.04 MG QD IV
     Route: 042
     Dates: start: 20040816, end: 20050218
  3. STEROID [Concomitant]
  4. NEURONTIN [Concomitant]
  5. TAZOCILLINE [Concomitant]

REACTIONS (7)
  - ACUTE LYMPHOCYTIC LEUKAEMIA [None]
  - BONE MARROW DEPRESSION [None]
  - BRONCHOPULMONARY ASPERGILLOSIS [None]
  - COMPLICATIONS OF BONE MARROW TRANSPLANT [None]
  - CONDITION AGGRAVATED [None]
  - FEBRILE NEUTROPENIA [None]
  - MALIGNANT NEOPLASM PROGRESSION [None]
